FAERS Safety Report 7441488-1 (Version None)
Quarter: 2011Q2

REPORT INFORMATION
  Report Type: 
  Country: None (occurrence: None)
  Receive Date: 20110418
  Receipt Date: 20100716
  Transmission Date: 20111010
  Serious: Yes (Other)
  Sender: FDA-Public Use
  Company Number: COL_01107_2010

PATIENT
  Age: 18 Year
  Sex: Female

DRUGS (1)
  1. IRISH SPRING BAR SOAP UNSPECIFIED [Suspect]
     Dosage: (TOPICAL)
     Route: 061

REACTIONS (2)
  - THERMAL BURN [None]
  - BLISTER [None]
